FAERS Safety Report 13825712 (Version 3)
Quarter: 2017Q3

REPORT INFORMATION
  Report Type: Report from Study
  Country: US (occurrence: US)
  Receive Date: 20170802
  Receipt Date: 20170818
  Transmission Date: 20171127
  Serious: No
  Sender: FDA-Public Use
  Company Number: PHEH2017US024112

PATIENT
  Age: 40 Year
  Sex: Male
  Weight: 81.63 kg

DRUGS (1)
  1. GILENYA [Suspect]
     Active Substance: FINGOLIMOD HYDROCHLORIDE
     Indication: MULTIPLE SCLEROSIS
     Dosage: 0.5 MG, QD
     Route: 048
     Dates: start: 20170728

REACTIONS (4)
  - Temporomandibular joint syndrome [Unknown]
  - Dyspepsia [Unknown]
  - Muscle tightness [Unknown]
  - Anxiety [Unknown]

NARRATIVE: CASE EVENT DATE: 2017
